FAERS Safety Report 8862065 (Version 1)
Quarter: 2012Q4

REPORT INFORMATION
  Report Type: 
  Country: BR (occurrence: BR)
  Receive Date: 20121026
  Receipt Date: 20121026
  Transmission Date: 20130627
  Serious: Yes (Hospitalization, Other)
  Sender: FDA-Public Use
  Company Number: BR-PFIZER INC-2012265325

PATIENT
  Age: 54 Year
  Sex: Female

DRUGS (4)
  1. FRONTAL XR [Suspect]
     Indication: EMOTIONAL DISORDER
     Dosage: 1 mg, 2x/day
     Route: 048
     Dates: start: 2010, end: 2012
  2. OLMETEC [Suspect]
     Indication: HYPERTENSION
     Dosage: 20 mg, daily
     Route: 048
     Dates: start: 20120622
  3. RIVOTRIL [Concomitant]
     Indication: EMOTIONAL DISORDER
     Dosage: 2 mg, 2x/day
     Dates: start: 2010
  4. CALCITRAN B12 [Concomitant]

REACTIONS (4)
  - Neck mass [Unknown]
  - Neoplasm [Unknown]
  - Hypoacusis [Not Recovered/Not Resolved]
  - Alopecia [Unknown]
